FAERS Safety Report 4767371-8 (Version None)
Quarter: 2005Q3

REPORT INFORMATION
  Report Type: 
  Country: None (occurrence: None)
  Receive Date: 20050913
  Receipt Date: 20050902
  Transmission Date: 20060218
  Serious: Yes (Other)
  Sender: FDA-Public Use
  Company Number: DE-ROCHE-417249

PATIENT
  Age: 30 Year
  Sex: Female
  Weight: 58 kg

DRUGS (3)
  1. ROCALTROL [Suspect]
     Indication: THYROIDECTOMY
     Route: 065
  2. CALCIUM GLUCONATE [Concomitant]
  3. L-THYROXIN [Concomitant]

REACTIONS (5)
  - CAESAREAN SECTION [None]
  - DRUG EXPOSURE DURING PREGNANCY [None]
  - FALSE LABOUR [None]
  - PRE-ECLAMPSIA [None]
  - PREGNANCY [None]
